FAERS Safety Report 6289081-0 (Version None)
Quarter: 2009Q3

REPORT INFORMATION
  Report Type: 
  Country: None (occurrence: None)
  Receive Date: 20090728
  Receipt Date: 20090715
  Transmission Date: 20100115
  Serious: Yes (Hospitalization, Other)
  Sender: FDA-Public Use
  Company Number: 2009-190849-NL

PATIENT
  Age: 34 Year
  Sex: Female
  Weight: 124.7 kg

DRUGS (6)
  1. NUVARING [Suspect]
     Indication: MENSTRUATION IRREGULAR
     Dosage: 3 WEEKS IN 1 WEEK OUT
     Dates: start: 20040401, end: 20040601
  2. HYDROCHLOROTHIAZIDE [Concomitant]
  3. NORVASC [Concomitant]
  4. PROCARDIA [Concomitant]
  5. POTASSIUM CHLORIDE [Concomitant]
  6. LEXAPRO [Concomitant]

REACTIONS (15)
  - BLOOD THYROID STIMULATING HORMONE DECREASED [None]
  - DEEP VEIN THROMBOSIS [None]
  - DYSMENORRHOEA [None]
  - DYSPNOEA [None]
  - FURUNCLE [None]
  - GASTRITIS [None]
  - HAEMATEMESIS [None]
  - MENORRHAGIA [None]
  - MENSTRUATION IRREGULAR [None]
  - MUSCULOSKELETAL PAIN [None]
  - OEDEMA PERIPHERAL [None]
  - PAIN IN EXTREMITY [None]
  - PALPITATIONS [None]
  - PULMONARY THROMBOSIS [None]
  - VAGINAL HAEMORRHAGE [None]
